FAERS Safety Report 16071150 (Version 1)
Quarter: 2019Q1

REPORT INFORMATION
  Report Type: Spontaneous
  Country: US (occurrence: US)
  Receive Date: 20190314
  Receipt Date: 20190314
  Transmission Date: 20190418
  Serious: No
  Sender: FDA-Public Use
  Company Number: US-PFIZER INC-2019100258

PATIENT
  Age: 53 Year
  Sex: Female
  Weight: 139 kg

DRUGS (1)
  1. LYRICA [Suspect]
     Active Substance: PREGABALIN
     Indication: LIMB DISCOMFORT
     Dosage: 25 MG, 3X/DAY

REACTIONS (3)
  - Drug effect delayed [Unknown]
  - Product use in unapproved indication [Unknown]
  - Bone pain [Not Recovered/Not Resolved]
